FAERS Safety Report 8591731-0 (Version None)
Quarter: 2012Q3

REPORT INFORMATION
  Report Type: 
  Country: None (occurrence: None)
  Receive Date: 20120814
  Receipt Date: 20120808
  Transmission Date: 20120928
  Serious: Yes (Disabling)
  Sender: FDA-Public Use
  Company Number: PHHY2012FR068885

PATIENT
  Sex: Male

DRUGS (14)
  1. ZOLPIDEM TARTRATE [Concomitant]
     Indication: INSOMNIA
     Route: 048
  2. COLISTIN SULFATE [Suspect]
     Indication: CYSTIC FIBROSIS PANCREATIC
     Dosage: 1 DF, BID
     Route: 045
     Dates: start: 20070925
  3. NEORAL [Suspect]
     Dosage: 325 MG IN THE MORNING AND 310 MG IN TH EVENING
     Route: 048
     Dates: start: 20071001, end: 20071002
  4. MOVIPREP [Suspect]
     Indication: CONSTIPATION
     Dosage: 1 DF, TID
     Route: 048
     Dates: start: 20070925
  5. KEPPRA [Suspect]
     Indication: EPILEPSY
     Dosage: 1 DF, BID
     Route: 048
     Dates: start: 20070730
  6. OXACILLIN [Suspect]
     Indication: STAPHYLOCOCCAL INFECTION
     Dosage: 1 G, TID
     Route: 048
     Dates: start: 20070919, end: 20071107
  7. CREON [Suspect]
     Indication: PANCREATIC INSUFFICIENCY
     Dosage: 1 DF, 5QD
     Route: 048
     Dates: start: 20070925
  8. NEXIUM [Suspect]
     Indication: PROPHYLAXIS AGAINST GASTROINTESTINAL ULCER
     Dosage: 40 MG, QD
     Route: 048
     Dates: start: 20070925
  9. ATARAX [Concomitant]
     Indication: ANXIETY
     Route: 048
  10. PAROXETINE HCL [Concomitant]
     Indication: DEPRESSION
     Dosage: 1 DF, QD
     Route: 048
  11. NEORAL [Suspect]
     Indication: LUNG TRANSPLANT
     Route: 048
     Dates: start: 20070701
  12. PREDNISOLONE [Suspect]
     Indication: LUNG TRANSPLANT
     Dosage: 20 MG, QD
     Route: 048
     Dates: start: 20070924
  13. VALGANCICLOVIR [Suspect]
     Dosage: 1 DF, BID
     Route: 048
     Dates: start: 20070924, end: 20071105
  14. LOVENOX [Suspect]
     Dosage: 0.2 ML, DAILY
     Route: 058
     Dates: start: 20070925

REACTIONS (4)
  - VISUAL IMPAIRMENT [None]
  - PAPILLOEDEMA [None]
  - OPTIC ISCHAEMIC NEUROPATHY [None]
  - WHITE BLOOD CELL COUNT DECREASED [None]
